FAERS Safety Report 10085897 (Version 5)
Quarter: 2014Q3

REPORT INFORMATION
  Report Type: Spontaneous
  Country: US (occurrence: US)
  Receive Date: 20140418
  Receipt Date: 20140811
  Transmission Date: 20150326
  Serious: No
  Sender: FDA-Public Use
  Company Number: US-009507513-1107USA02864

PATIENT
  Sex: Male
  Weight: 63.49 kg

DRUGS (3)
  1. PROPECIA [Suspect]
     Active Substance: FINASTERIDE
     Indication: ANDROGENETIC ALOPECIA
     Dosage: 1 MG, QD
     Route: 048
     Dates: start: 20071009, end: 20090312
  2. FINASTERIDE. [Suspect]
     Active Substance: FINASTERIDE
     Indication: ALOPECIA
     Dosage: 1.25 TABLET, QD
     Route: 048
     Dates: start: 20071011, end: 20090116
  3. PROPECIA [Suspect]
     Active Substance: FINASTERIDE
     Indication: ALOPECIA

REACTIONS (15)
  - Testicular atrophy [Unknown]
  - Dry skin [Unknown]
  - Libido decreased [Unknown]
  - Sexual dysfunction [Unknown]
  - Gout [Unknown]
  - Semen volume decreased [Unknown]
  - Cognitive disorder [Unknown]
  - Alcoholic liver disease [Unknown]
  - Eczema [Unknown]
  - Drug administration error [Unknown]
  - Genital pain [Unknown]
  - Erectile dysfunction [Unknown]
  - Wrong technique in drug usage process [Unknown]
  - Tinea infection [Unknown]
  - Hypogonadism [Unknown]

NARRATIVE: CASE EVENT DATE: 20071011
